FAERS Safety Report 5176649-8 (Version None)
Quarter: 2006Q4

REPORT INFORMATION
  Report Type: 
  Country: None (occurrence: None)
  Receive Date: 20061215
  Receipt Date: 20060916
  Transmission Date: 20070319
  Serious: Yes (Life-Threatening)
  Sender: FDA-Public Use
  Company Number: CA-ABBOTT-06P-028-0344131-00

PATIENT
  Age: 5 Year
  Sex: Female

DRUGS (1)
  1. SEVORANE LIQUID FOR INHALATION [Suspect]
     Indication: INDUCTION OF ANAESTHESIA
     Dates: start: 20060916, end: 20060916

REACTIONS (2)
  - ANAESTHETIC COMPLICATION [None]
  - CARDIAC ARREST [None]
